FAERS Safety Report 8573512-7 (Version None)
Quarter: 2012Q2

REPORT INFORMATION
  Report Type: 
  Country: None (occurrence: None)
  Receive Date: 20120423
  Receipt Date: 20091203
  Transmission Date: 20120825
  Serious: Yes (Hospitalization)
  Sender: FDA-Public Use
  Company Number: PHEH2009US16101

PATIENT
  Age: 46 Year
  Sex: Female
  Weight: 80 kg

DRUGS (10)
  1. MELANTUN [Concomitant]
  2. VITAMIN D [Concomitant]
  3. SENNA (SENNA, SENNA ALEXANDRINA) [Concomitant]
  4. MSSR () [Suspect]
     Dosage: 30 MG, EVERY 8 HOURS, ORAL
     Route: 048
  5. TRAZODONE HCL [Concomitant]
  6. TIZANIDINE HCL [Concomitant]
  7. EXJADE [Suspect]
     Indication: IRON OVERLOAD
     Dosage: 1500 MG PER DAY, ORAL
     Route: 048
  8. EXJADE [Suspect]
     Indication: SICKLE CELL ANAEMIA
     Dosage: 1500 MG PER DAY, ORAL
     Route: 048
  9. PRILOSEC [Concomitant]
  10. COLACE (DOCUSATE SODIUM) [Concomitant]

REACTIONS (2)
  - PAIN [None]
  - SICKLE CELL ANAEMIA WITH CRISIS [None]
